FAERS Safety Report 10241459 (Version 1)
Quarter: 2014Q2

REPORT INFORMATION
  Report Type: Report from Study
  Country: CA (occurrence: CA)
  Receive Date: 20140617
  Receipt Date: 20140617
  Transmission Date: 20141212
  Serious: Yes (Other)
  Sender: FDA-Public Use
  Company Number: CA-JNJFOC-20140605310

PATIENT
  Sex: Male
  Weight: 75.3 kg

DRUGS (2)
  1. REMICADE [Suspect]
     Indication: CROHN^S DISEASE
     Dosage: INITIATED 3 YEARS PRIOR THIS REPORT
     Route: 042
     Dates: start: 2011
  2. REMICADE [Suspect]
     Indication: CROHN^S DISEASE
     Route: 042
     Dates: start: 20140610

REACTIONS (2)
  - Haemorrhoids [Unknown]
  - Neoplasm malignant [Recovering/Resolving]
